FAERS Safety Report 24956253 (Version 1)
Quarter: 2025Q1

REPORT INFORMATION
  Report Type: Report from Study
  Country: IN (occurrence: IN)
  Receive Date: 20250211
  Receipt Date: 20250211
  Transmission Date: 20250409
  Serious: Yes (Death, Other)
  Sender: DAIICHI
  Company Number: IN-AstraZeneca-CH-00802644A

PATIENT
  Age: 65 Year
  Sex: Female
  Weight: 58 kg

DRUGS (1)
  1. ENHERTU [Suspect]
     Active Substance: FAM-TRASTUZUMAB DERUXTECAN-NXKI
     Indication: Targeted cancer therapy
     Dosage: 300 MILLILITRE PER KILOGRAM, TIW
     Route: 048
     Dates: start: 20241126

REACTIONS (1)
  - Death [Fatal]

NARRATIVE: CASE EVENT DATE: 20250114
